FAERS Safety Report 25785892 (Version 1)
Quarter: 2025Q3

REPORT INFORMATION
  Report Type: Spontaneous
  Country: US (occurrence: None)
  Receive Date: 20250909
  Receipt Date: 20250909
  Transmission Date: 20251021
  Serious: No
  Sender: FDA-CTU
  Company Number: None

PATIENT
  Age: 56 Year

DRUGS (14)
  1. AUSTEDO XR [Suspect]
     Active Substance: DEUTETRABENAZINE
     Indication: Tardive dyskinesia
     Dates: start: 20250324
  2. Centrium silver tablets women [Concomitant]
     Dates: start: 20240305
  3. Magnesium 250 tablets [Concomitant]
     Dates: start: 20240305
  4. Vitamin C tablets [Concomitant]
     Dates: start: 20240305
  5. Cyproheptadine 4mg tablets [Concomitant]
     Indication: Dystonia
     Dates: start: 20240305
  6. FLUOXETINE HYDROCHLORIDE [Concomitant]
     Active Substance: FLUOXETINE HYDROCHLORIDE
     Indication: Dystonia
     Dates: start: 20240305
  7. LISINOPRIL [Concomitant]
     Active Substance: LISINOPRIL
     Indication: Hypertension
     Dates: start: 20240305
  8. Meloxicam 10mg capsules [Concomitant]
     Indication: Pain
     Dates: start: 20240305
  9. ATORVASTATIN CALCIUM [Concomitant]
     Active Substance: ATORVASTATIN CALCIUM
     Indication: Hyperlipidaemia
     Dates: start: 20241231
  10. desvenlafaxine ER 100ma tablets [Concomitant]
     Dates: start: 20241231
  11. lasix 20mq tablets [Concomitant]
     Indication: Hypertension
     Dates: start: 20241231
  12. ALBUTEROL SULFATE [Concomitant]
     Active Substance: ALBUTEROL SULFATE
     Indication: Asthma
     Dates: start: 20241231
  13. Protonix 40mg tablets [Concomitant]
     Indication: Gastrooesophageal reflux disease
     Dates: start: 20241231
  14. TIZANIDINE HYDROCHLORIDE [Concomitant]
     Active Substance: TIZANIDINE HYDROCHLORIDE
     Indication: Muscle spasms
     Dates: start: 20241231

REACTIONS (1)
  - Depressive symptom [None]
